FAERS Safety Report 7156635-9 (Version None)
Quarter: 2010Q4

REPORT INFORMATION
  Report Type: 
  Country: None (occurrence: None)
  Receive Date: 20101214
  Receipt Date: 20090805
  Transmission Date: 20110411
  Serious: No
  Sender: FDA-Public Use
  Company Number: US-ASTRAZENECA-2009SE06977

PATIENT
  Age: 68 Year
  Sex: Female
  Weight: 52.2 kg

DRUGS (3)
  1. CRESTOR [Suspect]
     Route: 048
     Dates: start: 20081001
  2. ENALAPRIL [Concomitant]
  3. METOPROLOL [Concomitant]

REACTIONS (3)
  - CUTIS LAXA [None]
  - MUSCLE ATROPHY [None]
  - WEIGHT DECREASED [None]
